FAERS Safety Report 6664042-8 (Version None)
Quarter: 2010Q2

REPORT INFORMATION
  Report Type: 
  Country: None (occurrence: None)
  Receive Date: 20100401
  Receipt Date: 20100326
  Transmission Date: 20101027
  Serious: Yes (Other)
  Sender: FDA-Public Use
  Company Number: A0850764B

PATIENT
  Sex: Male
  Weight: 12.1 kg

DRUGS (2)
  1. BLINDED VACCINE [Suspect]
     Route: 030
     Dates: start: 20090917, end: 20090917
  2. AMOXICILLIN AND CLAVULANATE POTASSIUM [Suspect]
     Indication: SINUSITIS
     Dosage: 100MG CUMULATIVE DOSE
     Route: 048
     Dates: start: 20100312, end: 20100317

REACTIONS (1)
  - GASTROENTERITIS [None]
